FAERS Safety Report 6241769-3 (Version None)
Quarter: 2009Q2

REPORT INFORMATION
  Report Type: 
  Country: None (occurrence: None)
  Receive Date: 20090623
  Receipt Date: 20090611
  Transmission Date: 20091009
  Serious: Yes (Life-Threatening, Hospitalization)
  Sender: FDA-Public Use
  Company Number: GB-MYLANLABS-2009S1010474

PATIENT
  Age: 76 Year
  Sex: Male

DRUGS (7)
  1. WARFARIN SODIUM [Suspect]
     Indication: CEREBROVASCULAR ACCIDENT
     Route: 048
     Dates: end: 20090519
  2. WARFARIN SODIUM [Suspect]
     Indication: DEEP VEIN THROMBOSIS
     Route: 048
     Dates: end: 20090519
  3. WARFARIN SODIUM [Suspect]
     Indication: MYOCARDIAL INFARCTION
     Route: 048
     Dates: end: 20090519
  4. ATORVASTATIN CALCIUM [Concomitant]
     Indication: MYOCARDIAL INFARCTION
     Route: 048
  5. BISOPROLOL [Concomitant]
     Indication: MYOCARDIAL INFARCTION
     Route: 048
  6. NIFEDIPINE [Concomitant]
     Indication: ANGINA PECTORIS
  7. ZESTORETIC [Concomitant]
     Indication: MYOCARDIAL INFARCTION
     Route: 048

REACTIONS (3)
  - EPISTAXIS [None]
  - HAEMARTHROSIS [None]
  - INTERNATIONAL NORMALISED RATIO INCREASED [None]
